FAERS Safety Report 9896634 (Version 1)
Quarter: 2014Q1

REPORT INFORMATION
  Report Type: Spontaneous
  Country: US (occurrence: US)
  Receive Date: 20140213
  Receipt Date: 20140213
  Transmission Date: 20141002
  Serious: No
  Sender: FDA-Public Use
  Company Number: US-BRISTOL-MYERS SQUIBB COMPANY-19933910

PATIENT
  Age: 34 Year
  Sex: Female

DRUGS (2)
  1. ABATACEPT SUBQ INJECTION 125MG/ML [Suspect]
     Indication: RHEUMATOID ARTHRITIS
     Dosage: ALSO TOOK IV.?RECENT DOSE 10DEC13
     Route: 058
  2. ABATACEPT SUBQ INJECTION 125MG/ML [Suspect]
     Indication: ANKYLOSING SPONDYLITIS
     Dosage: ALSO TOOK IV.?RECENT DOSE 10DEC13
     Route: 058

REACTIONS (2)
  - Off label use [Unknown]
  - Product quality issue [Unknown]
